FAERS Safety Report 4613715-7 (Version None)
Quarter: 2005Q1

REPORT INFORMATION
  Report Type: 
  Country: None (occurrence: None)
  Receive Date: 20050321
  Receipt Date: 20050310
  Transmission Date: 20050727
  Serious: Yes (Other)
  Sender: FDA-Public Use
  Company Number: PHHO2005CA04273

PATIENT
  Age: 62 Year
  Sex: Female

DRUGS (1)
  1. ZELNORM [Suspect]
     Route: 048
     Dates: end: 20050101

REACTIONS (1)
  - FAECALOMA [None]
